FAERS Safety Report 9191450 (Version 1)
Quarter: 2013Q1

REPORT INFORMATION
  Report Type: Spontaneous
  Country: FR (occurrence: FR)
  Receive Date: 20130326
  Receipt Date: 20130326
  Transmission Date: 20140127
  Serious: Yes (Other)
  Sender: FDA-Public Use
  Company Number: FR-TEVA-393139ISR

PATIENT
  Age: 63 Year
  Sex: Male

DRUGS (4)
  1. MYCOPHENOLATE MOFETIL [Suspect]
     Indication: IMMUNOSUPPRESSION
     Dosage: 2 GRAM DAILY;
     Route: 065
  2. VORICONAZOLE [Interacting]
     Indication: FUNGAL SKIN INFECTION
     Dosage: 400 MILLIGRAM DAILY;
     Route: 048
  3. TACROLIMUS [Interacting]
     Indication: IMMUNOSUPPRESSION
     Route: 065
  4. THYMOGLOBULIN [Suspect]
     Indication: IMMUNOSUPPRESSION
     Route: 065

REACTIONS (4)
  - Renal failure acute [Unknown]
  - Drug interaction [Unknown]
  - Alternaria infection [Recovered/Resolved]
  - Fungal skin infection [Recovered/Resolved]
